FAERS Safety Report 4269483-4 (Version None)
Quarter: 2004Q1

REPORT INFORMATION
  Report Type: 
  Country: None (occurrence: None)
  Receive Date: 20040113
  Receipt Date: 20040108
  Transmission Date: 20041129
  Serious: Yes (Death)
  Sender: FDA-Public Use
  Company Number: FR-ROCHE-355471

PATIENT
  Age: 80 Year
  Sex: Female

DRUGS (2)
  1. ROCEPHIN [Suspect]
     Indication: INFECTION
     Route: 030
     Dates: start: 20031015, end: 20031027
  2. TOPLEXIL [Suspect]
     Indication: DRUG USE FOR UNKNOWN INDICATION
     Route: 048
     Dates: start: 20031109, end: 20031118

REACTIONS (1)
  - CHOLESTASIS [None]
